FAERS Safety Report 5960548-5 (Version None)
Quarter: 2008Q4

REPORT INFORMATION
  Report Type: 
  Country: None (occurrence: None)
  Receive Date: 20081120
  Receipt Date: 20081111
  Transmission Date: 20090506
  Serious: Yes (Other)
  Sender: FDA-Public Use
  Company Number: US-PFIZER INC-2008017010

PATIENT
  Sex: Male
  Weight: 103.4 kg

DRUGS (10)
  1. LIPITOR [Suspect]
     Indication: HYPERCHOLESTEROLAEMIA
     Route: 048
  2. LIPITOR [Suspect]
     Indication: HIGH DENSITY LIPOPROTEIN DECREASED
  3. NEXIUM [Suspect]
     Indication: GASTROOESOPHAGEAL REFLUX DISEASE
     Dates: start: 20070101, end: 20071101
  4. AGGRENOX [Concomitant]
  5. ACETYLSALICYLIC ACID SRT [Concomitant]
     Route: 048
  6. LACTAID [Concomitant]
  7. PEPCID [Concomitant]
  8. TOPROL-XL [Concomitant]
     Route: 048
  9. LASIX [Concomitant]
     Dosage: TEXT:40-80MG-FREQ:DAILY AS NEEDED
     Route: 048
  10. ZETIA [Concomitant]
     Route: 048
     Dates: start: 20051227

REACTIONS (15)
  - ACHLORHYDRIA [None]
  - ANAEMIA [None]
  - ARTERIAL OCCLUSIVE DISEASE [None]
  - BLOOD CHOLESTEROL ABNORMAL [None]
  - BLOOD IRON INCREASED [None]
  - CEREBROVASCULAR ACCIDENT [None]
  - CORONARY ARTERY DISEASE [None]
  - GASTROINTESTINAL DISORDER [None]
  - HAEMOGLOBIN DECREASED [None]
  - IRON DEFICIENCY [None]
  - IRON METABOLISM DISORDER [None]
  - MYALGIA [None]
  - OCCULT BLOOD POSITIVE [None]
  - POLYP [None]
  - TRANSIENT ISCHAEMIC ATTACK [None]
